FAERS Safety Report 13592534 (Version 1)
Quarter: 2017Q2

REPORT INFORMATION
  Report Type: Spontaneous
  Country: US (occurrence: US)
  Receive Date: 20170530
  Receipt Date: 20170530
  Transmission Date: 20170830
  Serious: No
  Sender: FDA-Public Use
  Company Number: US-PERRIGO-16US021732

PATIENT
  Sex: Female

DRUGS (3)
  1. DIHYDROERGOTAMINE MESYLATE. [Suspect]
     Active Substance: DIHYDROERGOTAMINE MESYLATE
     Indication: MIGRAINE
     Dosage: 0.5 MG, SINGLE
     Route: 042
     Dates: start: 20160919, end: 20160919
  2. DIHYDROERGOTAMINE MESYLATE. [Suspect]
     Active Substance: DIHYDROERGOTAMINE MESYLATE
     Dosage: 0.75 MG, SINGLE
     Route: 042
     Dates: start: 20160919, end: 20160919
  3. DIHYDROERGOTAMINE MESYLATE. [Suspect]
     Active Substance: DIHYDROERGOTAMINE MESYLATE
     Dosage: 1 MG, EVERY 8 HOURS, UP TO 10 TIMES
     Route: 042
     Dates: start: 20160920, end: 20160923

REACTIONS (1)
  - Thrombophlebitis superficial [Unknown]

NARRATIVE: CASE EVENT DATE: 20160930
